FAERS Safety Report 7455152-6 (Version None)
Quarter: 2011Q2

REPORT INFORMATION
  Report Type: 
  Country: None (occurrence: None)
  Receive Date: 20110503
  Receipt Date: 20110427
  Transmission Date: 20111010
  Serious: Yes (Life-Threatening, Hospitalization)
  Sender: FDA-Public Use
  Company Number: FR-SANOFI-AVENTIS-2011SA004083

PATIENT
  Age: 81 Year
  Sex: Male
  Weight: 73 kg

DRUGS (9)
  1. APROVEL [Suspect]
     Route: 048
  2. LEVOTHYROX [Suspect]
     Indication: HYPOTHYROIDISM
     Route: 048
  3. AUGMENTIN [Concomitant]
     Indication: BRONCHITIS
     Route: 065
     Dates: start: 20101210, end: 20101218
  4. MULTAQ [Suspect]
     Route: 048
     Dates: start: 20101124, end: 20110204
  5. DOXAZOSIN MESYLATE [Suspect]
     Route: 048
  6. PREVISCAN [Suspect]
     Route: 048
     Dates: start: 20101124, end: 20110101
  7. PRAVASTATIN [Suspect]
     Route: 048
  8. FLAGYL [Concomitant]
     Indication: CLOSTRIDIUM DIFFICILE COLITIS
     Route: 048
     Dates: start: 20110101, end: 20110101
  9. CABERGOLINE [Suspect]
     Indication: PROLACTINOMA
     Dosage: DOSE:1 UNIT(S)
     Route: 048

REACTIONS (6)
  - CHOLESTASIS [None]
  - INFLAMMATION [None]
  - SQUAMOUS CELL CARCINOMA [None]
  - ABDOMINAL PAIN [None]
  - GENERAL PHYSICAL HEALTH DETERIORATION [None]
  - LEUKOCYTOSIS [None]
